FAERS Safety Report 21556852 (Version 1)
Quarter: 2022Q4

REPORT INFORMATION
  Report Type: Spontaneous
  Country: US (occurrence: US)
  Receive Date: 20221104
  Receipt Date: 20221104
  Transmission Date: 20230113
  Serious: No
  Sender: FDA-Public Use
  Company Number: US-BRISTOL-MYERS SQUIBB COMPANY-2022-132859

PATIENT
  Age: 69 Year
  Sex: Female
  Weight: 50 kg

DRUGS (12)
  1. REVLIMID [Suspect]
     Active Substance: LENALIDOMIDE
     Indication: Plasma cell myeloma
     Route: 048
     Dates: start: 20221007
  2. REVLIMID [Suspect]
     Active Substance: LENALIDOMIDE
     Dosage: #1 14/28
     Route: 048
     Dates: start: 20221007
  3. ASPIRIN [Concomitant]
     Active Substance: ASPIRIN
     Indication: Product used for unknown indication
     Route: 048
  4. ASPIRIN [Concomitant]
     Active Substance: ASPIRIN
     Dosage: #1 14/28
     Route: 048
     Dates: start: 20221007
  5. ACYCLOVIR [Concomitant]
     Active Substance: ACYCLOVIR
     Indication: Product used for unknown indication
     Route: 048
  6. ACYCLOVIR [Concomitant]
     Active Substance: ACYCLOVIR
     Dosage: #1 14/28
     Route: 048
     Dates: start: 20221007
  7. BENADRYL ALLERGY [Concomitant]
     Active Substance: DIPHENHYDRAMINE HYDROCHLORIDE
     Indication: Product used for unknown indication
     Route: 048
  8. BENADRYL ALLERGY [Concomitant]
     Active Substance: DIPHENHYDRAMINE HYDROCHLORIDE
     Dosage: #1 14/28
     Route: 048
     Dates: start: 20221007
  9. VITAMIN B COMPLEX [CYANOCOBALAMIN] [Concomitant]
     Indication: Product used for unknown indication
     Route: 048
  10. VITAMIN B COMPLEX [CYANOCOBALAMIN] [Concomitant]
     Dosage: #1 14/28
     Route: 048
     Dates: start: 20221007
  11. XGEVA [Concomitant]
     Active Substance: DENOSUMAB
     Indication: Product used for unknown indication
     Dosage: DAILY
     Route: 048
  12. XGEVA [Concomitant]
     Active Substance: DENOSUMAB
     Dosage: #1 14/28
     Route: 048
     Dates: start: 20221007

REACTIONS (1)
  - Neutrophil count decreased [Recovering/Resolving]

NARRATIVE: CASE EVENT DATE: 20221025
